FAERS Safety Report 9346285 (Version 2)
Quarter: 2013Q2

REPORT INFORMATION
  Report Type: Spontaneous
  Country: US (occurrence: US)
  Receive Date: 20130613
  Receipt Date: 20130620
  Transmission Date: 20140414
  Serious: Yes (Other)
  Sender: FDA-Public Use
  Company Number: US-PFIZER INC-2013176349

PATIENT
  Age: 23 Year
  Sex: Female

DRUGS (1)
  1. MS CONTIN [Suspect]
     Dosage: UNK
     Route: 051

REACTIONS (1)
  - Drug abuse [Unknown]
